FAERS Safety Report 17643251 (Version 1)
Quarter: 2020Q2

REPORT INFORMATION
  Report Type: Spontaneous
  Country: US (occurrence: US)
  Receive Date: 20200408
  Receipt Date: 20200408
  Transmission Date: 20200713
  Serious: No
  Sender: FDA-Public Use
  Company Number: US-ALLERGAN-1943557US

PATIENT
  Sex: Female

DRUGS (2)
  1. LILETTA [Suspect]
     Active Substance: LEVONORGESTREL
     Indication: CONTRACEPTION
     Dosage: 52 MG, SINGLE
     Route: 015
     Dates: start: 201511, end: 201908
  2. VYTORIN [Concomitant]
     Active Substance: EZETIMIBE\SIMVASTATIN
     Indication: NERVE INJURY
     Dosage: 75 MG

REACTIONS (8)
  - Costochondritis [Unknown]
  - Weight increased [Unknown]
  - Loss of libido [Unknown]
  - Acne [Unknown]
  - Pain [Unknown]
  - Ovarian cyst [Unknown]
  - Furuncle [Unknown]
  - Pelvic pain [Unknown]

NARRATIVE: CASE EVENT DATE: 201809
